FAERS Safety Report 17484892 (Version 1)
Quarter: 2020Q1

REPORT INFORMATION
  Report Type: Spontaneous
  Country: AT (occurrence: AT)
  Receive Date: 20200302
  Receipt Date: 20200302
  Transmission Date: 20200409
  Serious: Yes (Life-Threatening)
  Sender: FDA-Public Use
  Company Number: AT-NOVOPROD-714267

PATIENT
  Sex: Male
  Weight: 175 kg

DRUGS (1)
  1. SAXENDA [Suspect]
     Active Substance: LIRAGLUTIDE
     Indication: PRODUCT USED FOR UNKNOWN INDICATION
     Dosage: UNK
     Route: 065
     Dates: start: 20190116

REACTIONS (2)
  - Anaemia [Unknown]
  - Colon cancer [Unknown]

NARRATIVE: CASE EVENT DATE: 201907
